FAERS Safety Report 16934444 (Version 1)
Quarter: 2019Q4

REPORT INFORMATION
  Report Type: Spontaneous
  Country: CA (occurrence: CA)
  Receive Date: 20191018
  Receipt Date: 20191018
  Transmission Date: 20200122
  Serious: Yes (Hospitalization)
  Sender: FDA-Public Use
  Company Number: CA-UNITED THERAPEUTICS-UNT-2019-017291

PATIENT
  Age: 8 Year
  Sex: Female

DRUGS (1)
  1. REMODULIN [Suspect]
     Active Substance: TREPROSTINIL
     Indication: PRODUCT USED FOR UNKNOWN INDICATION
     Dosage: UNK, CONTINUING (0.028 ML/HR)
     Route: 058
     Dates: start: 20130611

REACTIONS (4)
  - Diarrhoea [Unknown]
  - Incorrect drug administration rate [Unknown]
  - Vomiting [Unknown]
  - Transplant rejection [Unknown]

NARRATIVE: CASE EVENT DATE: 20191009
